FAERS Safety Report 8448860-1 (Version None)
Quarter: 2012Q2

REPORT INFORMATION
  Report Type: 
  Country: None (occurrence: None)
  Receive Date: 20120619
  Receipt Date: 20120611
  Transmission Date: 20120825
  Serious: Yes (Hospitalization, Other)
  Sender: FDA-Public Use
  Company Number: US-US-EMD SERONO, INC.-7138289

PATIENT
  Sex: Female
  Weight: 62 kg

DRUGS (10)
  1. TOVIAZ [Concomitant]
     Indication: MULTIPLE SCLEROSIS
     Route: 048
  2. REBIF [Suspect]
     Indication: RELAPSING-REMITTING MULTIPLE SCLEROSIS
     Route: 058
     Dates: start: 20030917
  3. BACLOFEN [Concomitant]
     Indication: MUSCLE SPASTICITY
     Route: 048
  4. AMBIEN [Concomitant]
     Indication: INSOMNIA
     Route: 048
  5. BUPROPION HCL [Concomitant]
     Indication: DEPRESSION
  6. LYRICA [Concomitant]
     Indication: MULTIPLE SCLEROSIS
     Route: 048
  7. PROVIGIL [Concomitant]
     Indication: FATIGUE
     Route: 048
  8. BACLOFEN [Concomitant]
     Indication: MULTIPLE SCLEROSIS
  9. OMEPRAZOLE [Concomitant]
     Indication: GASTROOESOPHAGEAL REFLUX DISEASE
     Route: 048
  10. TOVIAZ [Concomitant]
     Indication: POLLAKIURIA

REACTIONS (6)
  - OVARIAN CYST [None]
  - INJECTION SITE ERYTHEMA [None]
  - INJECTION SITE PAIN [None]
  - INTERVERTEBRAL DISC OPERATION [None]
  - HEADACHE [None]
  - INJECTION SITE SCAR [None]
